FAERS Safety Report 10145518 (Version 1)
Quarter: 2014Q2

REPORT INFORMATION
  Report Type: Spontaneous
  Country: US (occurrence: US)
  Receive Date: 20140501
  Receipt Date: 20140501
  Transmission Date: 20141212
  Serious: Yes (Other)
  Sender: FDA-Public Use
  Company Number: US-AMGEN-USASP2014030447

PATIENT
  Age: 78 Year
  Sex: Female

DRUGS (4)
  1. NEULASTA [Suspect]
     Indication: PRODUCT USED FOR UNKNOWN INDICATION
     Dosage: UNK UNK, AFTER CHEMO
     Route: 065
  2. CARBOPLATIN [Concomitant]
     Indication: SMALL CELL LUNG CANCER
     Dosage: UNK
     Dates: start: 20140414
  3. ETOPOSIDE [Concomitant]
     Indication: SMALL CELL LUNG CANCER
     Dosage: UNK
     Dates: start: 20140414
  4. RASBURICASE [Concomitant]
     Dosage: UNK

REACTIONS (1)
  - White blood cell count abnormal [Unknown]
